FAERS Safety Report 7603651-6 (Version None)
Quarter: 2011Q3

REPORT INFORMATION
  Report Type: 
  Country: None (occurrence: None)
  Receive Date: 20110712
  Receipt Date: 20110707
  Transmission Date: 20111222
  Serious: Yes (Other)
  Sender: FDA-Public Use
  Company Number: US-PFIZER INC-2011093809

PATIENT
  Sex: Female

DRUGS (6)
  1. SELENIUM [Concomitant]
     Indication: RASH
     Dosage: UNK
     Dates: start: 20070201, end: 20090101
  2. EFFEXOR [Concomitant]
     Indication: ANXIETY
     Dosage: UNK
     Dates: start: 20071101
  3. SYNTHROID [Concomitant]
     Indication: HYPOTHYROIDISM
     Dosage: UNK
     Dates: start: 20060101
  4. LISINOPRIL [Concomitant]
     Indication: HYPERTENSION
     Dosage: UNK
     Dates: start: 20060101, end: 20100101
  5. CHANTIX [Suspect]
     Indication: SMOKING CESSATION THERAPY
     Dosage: 1 MG, UNK
     Dates: start: 20080301, end: 20080101
  6. NASACORT [Concomitant]
     Indication: RHINITIS ALLERGIC
     Dosage: UNK
     Dates: start: 19960101

REACTIONS (4)
  - SUICIDAL IDEATION [None]
  - DEPRESSION [None]
  - MENTAL DISORDER [None]
  - ANXIETY [None]
